FAERS Safety Report 6441637-8 (Version None)
Quarter: 2009Q4

REPORT INFORMATION
  Report Type: 
  Country: None (occurrence: None)
  Receive Date: 20091112
  Receipt Date: 20091103
  Transmission Date: 20100525
  Serious: Yes (Hospitalization)
  Sender: FDA-Public Use
  Company Number: ABGAG-09-0513

PATIENT
  Age: 68 Year
  Sex: Female

DRUGS (11)
  1. ABRAXANE [Suspect]
     Indication: BREAST CANCER
     Dosage: INTRAVENOUS
     Route: 042
  2. AVASTIN [Suspect]
     Indication: BREAST CANCER
  3. MORPHINE [Concomitant]
  4. COUMADIN [Concomitant]
  5. PROPOXYPHENE (DEXTROPROPOXYPHENE) [Concomitant]
  6. METOCLOPRAMIDE [Concomitant]
  7. METOPROLOL [Concomitant]
  8. PROCHLORPERAZINE [Concomitant]
  9. METHIMAZOLE [Concomitant]
  10. BACLOFEN [Concomitant]
  11. ALOXI [Concomitant]

REACTIONS (1)
  - PERIPHERAL SENSORIMOTOR NEUROPATHY [None]
